FAERS Safety Report 8946990 (Version 1)
Quarter: 2012Q4

REPORT INFORMATION
  Report Type: 
  Country: JP (occurrence: JP)
  Receive Date: 20121205
  Receipt Date: 20121205
  Transmission Date: 20130627
  Serious: Yes (Death, Hospitalization, Other)
  Sender: FDA-Public Use
  Company Number: JP-TEVA-372614ISR

PATIENT
  Sex: Male

DRUGS (8)
  1. PREDNISOLONE [Suspect]
     Indication: DIFFUSE LARGE B-CELL LYMPHOMA
     Dosage: 6 cycles as part of R-THP-COP
     Route: 065
     Dates: start: 2003, end: 2003
  2. RITUXIMAB [Suspect]
     Indication: DIFFUSE LARGE B-CELL LYMPHOMA
     Dosage: 6 cycles as part of R-THP-COP
     Route: 065
     Dates: start: 2003, end: 2003
  3. RITUXIMAB [Suspect]
     Indication: DIFFUSE LARGE B-CELL LYMPHOMA
     Dosage: 375 mg/m2 on day 1
     Route: 042
     Dates: end: 200404
  4. PIRARUBICIN [Suspect]
     Indication: DIFFUSE LARGE B-CELL LYMPHOMA
     Dosage: 6 cycles as part of R-THP-COP
     Route: 065
     Dates: start: 2003, end: 2003
  5. CYCLOPHOSPHAMIDE [Suspect]
     Indication: DIFFUSE LARGE B-CELL LYMPHOMA
     Dosage: 6 cycles as part of R-THP-COP
     Route: 065
     Dates: start: 2003, end: 2003
  6. VINCRISTINE [Suspect]
     Indication: DIFFUSE LARGE B-CELL LYMPHOMA
     Dosage: 6 cycles as part of R-THP-COP
     Route: 065
     Dates: start: 2003, end: 2003
  7. METHOTREXATE [Suspect]
     Indication: DIFFUSE LARGE B-CELL LYMPHOMA
     Dosage: high-dose
     Route: 065
     Dates: start: 200309
  8. CLADRIBINE [Suspect]
     Indication: DIFFUSE LARGE B-CELL LYMPHOMA
     Dosage: days 2-6
     Route: 042
     Dates: end: 200404

REACTIONS (3)
  - Sepsis [Fatal]
  - Myelodysplastic syndrome [Unknown]
  - Pancytopenia [Unknown]
